FAERS Safety Report 5145671-X (Version None)
Quarter: 2006Q4

REPORT INFORMATION
  Report Type: 
  Country: None (occurrence: None)
  Receive Date: 20061102
  Receipt Date: 20060925
  Transmission Date: 20070319
  Serious: Yes (Other)
  Sender: FDA-Public Use
  Company Number: 2006-03-0138

PATIENT
  Age: 71 Year
  Sex: Female

DRUGS (9)
  1. TEMODAL [Suspect]
     Indication: METASTASES TO BONE
     Dosage: 150 MG/M2; PO
     Route: 048
     Dates: start: 20050501, end: 20060201
  2. TEMODAL [Suspect]
     Indication: METASTASES TO SKIN
     Dosage: 150 MG/M2; PO
     Route: 048
     Dates: start: 20050501, end: 20060201
  3. TEMODAL [Suspect]
     Indication: PARAGANGLION NEOPLASM MALIGNANT
     Dosage: 150 MG/M2; PO
     Route: 048
     Dates: start: 20050501, end: 20060201
  4. SANDOSTATIN [Concomitant]
  5. LEVAXIN [Concomitant]
  6. PANTOLOC [Concomitant]
  7. DEXTROPROPOXYPHENE NAPSILATE [Concomitant]
  8. ALVEDON [Concomitant]
  9. BEHEPAN [Concomitant]

REACTIONS (2)
  - DEAFNESS UNILATERAL [None]
  - HEARING IMPAIRED [None]
